FAERS Safety Report 6151552-5 (Version None)
Quarter: 2009Q2

REPORT INFORMATION
  Report Type: 
  Country: None (occurrence: None)
  Receive Date: 20090410
  Receipt Date: 20090406
  Transmission Date: 20091009
  Serious: Yes (Other)
  Sender: FDA-Public Use
  Company Number: US-ASTRAZENECA-2009UW08644

PATIENT
  Age: 64 Year
  Sex: Male
  Weight: 114.3 kg

DRUGS (6)
  1. CRESTOR [Suspect]
     Route: 048
  2. NEURONTIN [Concomitant]
  3. WARFARIN [Concomitant]
  4. POTASSIUM CHLORIDE [Concomitant]
  5. GENERIC ATACAND [Concomitant]
     Route: 048
  6. SINUS MEDICATION [Concomitant]

REACTIONS (2)
  - SINUS DISORDER [None]
  - VISION BLURRED [None]
